FAERS Safety Report 23210626 (Version 1)
Quarter: 2023Q4

REPORT INFORMATION
  Report Type: Spontaneous
  Country: PL (occurrence: PL)
  Receive Date: 20231121
  Receipt Date: 20231121
  Transmission Date: 20240109
  Serious: Yes (Other)
  Sender: FDA-Public Use
  Company Number: PL-ASTELLAS-2023US034870

PATIENT
  Sex: Male

DRUGS (1)
  1. XTANDI [Suspect]
     Active Substance: ENZALUTAMIDE
     Indication: Product used for unknown indication
     Dosage: UNK UNK, UNKNOWN FREQ. (ACCORDING TO SPC)
     Route: 065

REACTIONS (4)
  - Renal failure [Unknown]
  - Creatinine renal clearance increased [Unknown]
  - Ischaemia [Unknown]
  - Condition aggravated [Unknown]
